FAERS Safety Report 13677971 (Version 1)
Quarter: 2017Q2

REPORT INFORMATION
  Report Type: Spontaneous
  Country: US (occurrence: US)
  Receive Date: 20170621
  Receipt Date: 20170621
  Transmission Date: 20170830
  Serious: No
  Sender: FDA-Public Use
  Company Number: None

PATIENT
  Sex: Male

DRUGS (1)
  1. HUMIRA [Suspect]
     Active Substance: ADALIMUMAB
     Indication: CROHN^S DISEASE
     Dosage: HUMIRA PEN (2/BOX) ONCE EVERY OTHER WEEK SUBCUTANEOULSY
     Route: 058
     Dates: start: 20170330

REACTIONS (1)
  - Discomfort [None]
